FAERS Safety Report 6617871-0 (Version None)
Quarter: 2010Q1

REPORT INFORMATION
  Report Type: 
  Country: None (occurrence: None)
  Receive Date: 20100308
  Receipt Date: 20100223
  Transmission Date: 20100710
  Serious: Yes (Other)
  Sender: FDA-Public Use
  Company Number: DE-ELI_LILLY_AND_COMPANY-DE201002006804

PATIENT
  Sex: Female

DRUGS (6)
  1. YENTREVE [Suspect]
     Dosage: 40 MG, 2/D
     Route: 048
     Dates: start: 20090101
  2. YENTREVE [Suspect]
     Dosage: UNK, UNKNOWN
     Route: 048
     Dates: start: 20090101
  3. TROSPIUM CHLORIDE [Concomitant]
     Dosage: 60 MG, DAILY (1/D)
     Route: 065
  4. TROSPIUM CHLORIDE [Concomitant]
     Dosage: UNK, UNKNOWN
     Route: 065
  5. AVASTIN [Concomitant]
     Dosage: UNK, UNKNOWN
     Route: 065
  6. LUCENTIS [Concomitant]
     Dosage: UNK, UNKNOWN
     Route: 065

REACTIONS (3)
  - EYE HAEMORRHAGE [None]
  - HAEMATOMA [None]
  - MACULAR OEDEMA [None]
